FAERS Safety Report 20839480 (Version 1)
Quarter: 2022Q2

REPORT INFORMATION
  Report Type: Spontaneous
  Country: US (occurrence: None)
  Receive Date: 20220516
  Receipt Date: 20220516
  Transmission Date: 20220721
  Serious: Yes (Death)
  Sender: FDA-Public Use
  Company Number: None

PATIENT
  Age: 78 Year
  Sex: Female

DRUGS (1)
  1. POMALYST [Suspect]
     Active Substance: POMALIDOMIDE
     Indication: Plasma cell myeloma
     Dosage: FREQUENCY : DAILY;?
     Route: 048
     Dates: start: 20211116, end: 20220108

REACTIONS (4)
  - Delirium [None]
  - Hypoglycaemia [None]
  - Feeding disorder [None]
  - Plasma cell myeloma [None]

NARRATIVE: CASE EVENT DATE: 20220108
